FAERS Safety Report 25589566 (Version 1)
Quarter: 2025Q3

REPORT INFORMATION
  Report Type: Spontaneous
  Country: US (occurrence: US)
  Receive Date: 20250722
  Receipt Date: 20250722
  Transmission Date: 20251020
  Serious: No
  Sender: BIOGEN
  Company Number: US-BIOGEN-2016BI00189416

PATIENT
  Sex: Female

DRUGS (13)
  1. AVONEX [Suspect]
     Active Substance: INTERFERON BETA-1A
     Indication: Multiple sclerosis
     Route: 050
  2. AVONEX [Suspect]
     Active Substance: INTERFERON BETA-1A
     Route: 050
     Dates: start: 20100211, end: 20130814
  3. AVONEX [Suspect]
     Active Substance: INTERFERON BETA-1A
  4. AVONEX [Suspect]
     Active Substance: INTERFERON BETA-1A
  5. AVONEX [Suspect]
     Active Substance: INTERFERON BETA-1A
     Indication: Multiple sclerosis
     Route: 050
     Dates: start: 20160114, end: 20160114
  6. AVONEX [Suspect]
     Active Substance: INTERFERON BETA-1A
     Route: 050
     Dates: start: 20160121, end: 20160121
  7. AVONEX [Suspect]
     Active Substance: INTERFERON BETA-1A
     Route: 050
     Dates: start: 20160128, end: 20160128
  8. AVONEX [Suspect]
     Active Substance: INTERFERON BETA-1A
     Route: 050
     Dates: start: 20160204, end: 20160204
  9. ARIPIPRAZOLE [Concomitant]
     Active Substance: ARIPIPRAZOLE
     Route: 050
  10. KLONOPIN [Concomitant]
     Active Substance: CLONAZEPAM
     Route: 050
  11. CLARITIN [Concomitant]
     Active Substance: LORATADINE
     Route: 050
  12. ZOLOFT [Concomitant]
     Active Substance: SERTRALINE HYDROCHLORIDE
     Route: 050
  13. KENALOG [Concomitant]
     Active Substance: TRIAMCINOLONE ACETONIDE
     Route: 050

REACTIONS (16)
  - Product administered at inappropriate site [Recovered/Resolved]
  - Increased tendency to bruise [Not Recovered/Not Resolved]
  - Panic attack [Recovered/Resolved]
  - Throat tightness [Unknown]
  - Hyperhidrosis [Unknown]
  - Fear [Unknown]
  - Haemorrhage [Unknown]
  - Phobia [Recovered/Resolved]
  - Tremor [Recovered/Resolved]
  - Irritability [Recovered/Resolved]
  - Injection site bruising [Unknown]
  - Pain in extremity [Unknown]
  - Injection site haemorrhage [Unknown]
  - Injection site pain [Unknown]
  - Emotional distress [Recovered/Resolved]
  - Feeling hot [Unknown]

NARRATIVE: CASE EVENT DATE: 20100101
